FAERS Safety Report 19104884 (Version 4)
Quarter: 2021Q3

REPORT INFORMATION
  Report Type: Other
  Country: US (occurrence: US)
  Receive Date: 20210408
  Receipt Date: 20210708
  Transmission Date: 20211014
  Serious: No
  Sender: FDA-Public Use
  Company Number: US-NEUROCRINE BIOSCIENCES INC.-2021NBI01451

PATIENT

DRUGS (9)
  1. BUSPAR [Concomitant]
     Active Substance: BUSPIRONE HYDROCHLORIDE
     Dosage: 15 MILLIGRAM
  2. INGREZZA [Suspect]
     Active Substance: VALBENAZINE
     Indication: TARDIVE DYSKINESIA
     Dosage: 40 MILLIGRAM, QD
     Route: 048
     Dates: start: 20210327, end: 20210327
  3. INGREZZA [Suspect]
     Active Substance: VALBENAZINE
     Dosage: 80 MILLIGRAM, QD
     Route: 048
     Dates: start: 20210410, end: 2021
  4. CELEXA [Concomitant]
     Active Substance: CITALOPRAM HYDROBROMIDE
     Indication: DEPRESSION
     Dosage: 40 MILLIGRAM
  5. TOPAMAX [Concomitant]
     Active Substance: TOPIRAMATE
     Dosage: 150 MILLIGRAM, QD
     Route: 048
  6. KLONOPIN [Concomitant]
     Active Substance: CLONAZEPAM
     Dosage: 1.5 MILLIGRAM, QHS
     Route: 048
  7. LEVOXYL [Concomitant]
     Active Substance: LEVOTHYROXINE SODIUM
     Dosage: 88 MICROGRAM
     Route: 048
  8. CYTOMEL [Concomitant]
     Active Substance: LIOTHYRONINE SODIUM
     Dosage: 5 MICROGRAM, BID
     Route: 048
  9. PROMETRIUM [Concomitant]
     Active Substance: PROGESTERONE
     Dosage: 200 MILLIGRAM, QHS
     Route: 048

REACTIONS (9)
  - Cough [Unknown]
  - Pyrexia [Unknown]
  - Sedation [Recovered/Resolved with Sequelae]
  - Fatigue [Unknown]
  - Headache [Recovered/Resolved with Sequelae]
  - Fibromyalgia [Unknown]
  - Chills [Unknown]
  - Depression [Recovered/Resolved]
  - Feeling abnormal [Recovered/Resolved with Sequelae]

NARRATIVE: CASE EVENT DATE: 2021
